FAERS Safety Report 19292536 (Version 1)
Quarter: 2021Q2

REPORT INFORMATION
  Report Type: Spontaneous
  Country: IT (occurrence: IT)
  Receive Date: 20210524
  Receipt Date: 20210524
  Transmission Date: 20210717
  Serious: Yes (Other)
  Sender: FDA-Public Use
  Company Number: IT-ASTRAZENECA-2021A447382

PATIENT
  Age: 65 Year
  Sex: Male

DRUGS (3)
  1. MORPHINE [Interacting]
     Active Substance: MORPHINE
     Dosage: 10 MG
     Route: 065
  2. HEPARIN [Concomitant]
     Active Substance: HEPARIN SODIUM
  3. TICAGRELOR. [Suspect]
     Active Substance: TICAGRELOR
     Route: 048

REACTIONS (2)
  - Vascular stent thrombosis [Unknown]
  - Drug interaction [Unknown]
